FAERS Safety Report 21463411 (Version 2)
Quarter: 2022Q4

REPORT INFORMATION
  Report Type: Spontaneous
  Country: ES (occurrence: ES)
  Receive Date: 20221017
  Receipt Date: 20221027
  Transmission Date: 20230113
  Serious: Yes (Other)
  Sender: FDA-Public Use
  Company Number: ES-ROCHE-3193914

PATIENT
  Age: 51 Year
  Sex: Female

DRUGS (2)
  1. BEVACIZUMAB [Suspect]
     Active Substance: BEVACIZUMAB
     Indication: Non-small cell lung cancer
     Dosage: 7.5 MILLIGRAM PER MILLILITRE
     Route: 065
  2. CARBOPLATIN;PEMETREXED [Concomitant]
     Dosage: UNK

REACTIONS (2)
  - Large intestinal ulcer [Unknown]
  - Rectal haemorrhage [Unknown]
